FAERS Safety Report 9860916 (Version 1)
Quarter: 2014Q1

REPORT INFORMATION
  Report Type: Spontaneous
  Country: US (occurrence: None)
  Receive Date: 20140130
  Receipt Date: 20140130
  Transmission Date: 20141002
  Serious: Yes (Hospitalization)
  Sender: FDA-Public Use
  Company Number: FK201400238

PATIENT
  Age: 50 Year
  Sex: Male

DRUGS (1)
  1. AMPICILLIN [Suspect]
     Indication: CELLULITIS
     Dosage: INTRAVENOUS (NOT OTHERWISE SPECIFIED)?
     Route: 042

REACTIONS (19)
  - Anaphylactic reaction [None]
  - Erythema [None]
  - Oedema [None]
  - Tenderness [None]
  - Pyrexia [None]
  - Dyspnoea [None]
  - Heart rate increased [None]
  - Sinus tachycardia [None]
  - Respiratory rate increased [None]
  - Blood pressure systolic increased [None]
  - Oxygen saturation decreased [None]
  - Wheezing [None]
  - Dizziness [None]
  - Pruritus [None]
  - Abdominal pain [None]
  - Urticaria [None]
  - Flushing [None]
  - Heart rate decreased [None]
  - Blood pressure decreased [None]
